FAERS Safety Report 23278365 (Version 7)
Quarter: 2024Q4

REPORT INFORMATION
  Report Type: Spontaneous
  Country: US (occurrence: US)
  Receive Date: 20231208
  Receipt Date: 20241231
  Transmission Date: 20250114
  Serious: Yes (Other)
  Sender: PFIZER
  Company Number: US-PFIZER INC-PV202300187474

PATIENT
  Age: 87 Year
  Sex: Female
  Weight: 79.83 kg

DRUGS (4)
  1. IBRANCE [Suspect]
     Active Substance: PALBOCICLIB
     Indication: Neoplasm malignant
     Dosage: 125 MG, CYCLIC (1 TABLET DAILY ON DAYS 1-21 OF A 28 DAY TREATMENT CYCLE)
     Route: 048
  2. IBRANCE [Suspect]
     Active Substance: PALBOCICLIB
     Dosage: 125 MG, CYCLIC (1 TABLET DAILY ON DAYS 1-21 OF A 28 DAY TREATMENT CYCLE)
     Route: 048
  3. IBRANCE [Suspect]
     Active Substance: PALBOCICLIB
     Dosage: 1 DF, CYCLIC (ONE DAILY FOR THREE WEEKS AND ONE WEEK OFF)
     Route: 048
     Dates: start: 20231231
  4. IBRANCE [Suspect]
     Active Substance: PALBOCICLIB
     Dosage: 125 MG, CYCLIC (1 TAB EVERY DAY ON DAYS 1 THROUGH 21 OF EVERY 28 DAYS)
     Route: 048

REACTIONS (6)
  - Epistaxis [Unknown]
  - Product dose omission issue [Unknown]
  - Product prescribing issue [Unknown]
  - Product dispensing error [Unknown]
  - Visual impairment [Unknown]
  - Malaise [Unknown]
